FAERS Safety Report 20236457 (Version 1)
Quarter: 2021Q4

REPORT INFORMATION
  Report Type: Spontaneous
  Country: FR (occurrence: FR)
  Receive Date: 20211228
  Receipt Date: 20211228
  Transmission Date: 20220303
  Serious: Yes (Hospitalization, Other)
  Sender: FDA-Public Use
  Company Number: FR-AMGEN-FRASP2021203615

PATIENT
  Age: 35 Year
  Sex: Female

DRUGS (6)
  1. ROMIPLOSTIM [Suspect]
     Active Substance: ROMIPLOSTIM
     Indication: Immune thrombocytopenia
     Dosage: UNK
     Route: 065
  2. HUMAN IMMUNOGLOBULIN G [Concomitant]
     Active Substance: HUMAN IMMUNOGLOBULIN G
  3. MYCOPHENOLATE MOFETIL [Concomitant]
     Active Substance: MYCOPHENOLATE MOFETIL
  4. ELTROMBOPAG [Concomitant]
     Active Substance: ELTROMBOPAG
  5. DAPSONE\FERROUS OXALATE [Concomitant]
     Active Substance: DAPSONE\FERROUS OXALATE
  6. RITUXIMAB [Concomitant]
     Active Substance: RITUXIMAB

REACTIONS (3)
  - Immune thrombocytopenia [Unknown]
  - Pneumonia bacterial [Unknown]
  - Treatment failure [Unknown]
